FAERS Safety Report 5733841-9 (Version None)
Quarter: 2008Q2

REPORT INFORMATION
  Report Type: 
  Country: None (occurrence: None)
  Receive Date: 20080509
  Receipt Date: 20080430
  Transmission Date: 20081010
  Serious: Yes (Hospitalization)
  Sender: FDA-Public Use
  Company Number: US-PFIZER INC-2008035898

PATIENT
  Sex: Male
  Weight: 71.7 kg

DRUGS (5)
  1. SU-011,248 [Suspect]
     Indication: METASTATIC RENAL CELL CARCINOMA
     Route: 048
  2. METFORMIN HCL [Concomitant]
  3. GLIPIZIDE [Concomitant]
     Route: 048
  4. FERROUS SULFATE TAB [Concomitant]
     Route: 048
  5. TAMSULOSIN HCL [Concomitant]
     Route: 048
     Dates: start: 20070101

REACTIONS (1)
  - DEMENTIA [None]
